FAERS Safety Report 8382418-8 (Version None)
Quarter: 2012Q2

REPORT INFORMATION
  Report Type: 
  Country: None (occurrence: None)
  Receive Date: 20120524
  Receipt Date: 20120507
  Transmission Date: 20120825
  Serious: Yes (Hospitalization)
  Sender: FDA-Public Use
  Company Number: ES-JNJFOC-20120513230

PATIENT
  Age: 39 Year
  Sex: Female

DRUGS (5)
  1. ZALDIAR [Suspect]
     Indication: BACK PAIN
     Route: 048
     Dates: start: 20111121, end: 20111210
  2. ADOLONTA REATRD [Suspect]
     Indication: BACK PAIN
     Route: 048
     Dates: start: 20111203, end: 20111210
  3. DIAZEPAM [Concomitant]
     Indication: ANXIETY
     Route: 048
     Dates: start: 20111205, end: 20111209
  4. CITALOPRAM HYDROBROMIDE [Suspect]
     Indication: DEPRESSION
     Route: 048
     Dates: start: 20111130, end: 20111210
  5. ESOMEPRAZOLE MAGNESIUM [Suspect]
     Indication: BACK PAIN
     Route: 048
     Dates: start: 20110926, end: 20111210

REACTIONS (1)
  - MYOCLONUS [None]
